FAERS Safety Report 8337650-6 (Version None)
Quarter: 2012Q2

REPORT INFORMATION
  Report Type: 
  Country: None (occurrence: None)
  Receive Date: 20120504
  Receipt Date: 20120504
  Transmission Date: 20120825
  Serious: Yes (Hospitalization)
  Sender: FDA-Public Use
  Company Number: None

PATIENT
  Age: 50 Year
  Sex: Female
  Weight: 92.986 kg

DRUGS (1)
  1. VASOTEC [Suspect]

REACTIONS (6)
  - DYSPNOEA [None]
  - PRURITUS [None]
  - ANGIOEDEMA [None]
  - BURNING SENSATION [None]
  - ABDOMINAL DISTENSION [None]
  - NAUSEA [None]
